FAERS Safety Report 14615058 (Version 1)
Quarter: 2018Q1

REPORT INFORMATION
  Report Type: Spontaneous
  Country: GR (occurrence: GR)
  Receive Date: 20180308
  Receipt Date: 20180308
  Transmission Date: 20180509
  Serious: Yes (Other)
  Sender: FDA-Public Use
  Company Number: GR-PFIZER INC-2018088742

PATIENT
  Age: 14 Year
  Sex: Female

DRUGS (1)
  1. METHYLPREDNISOLONE. [Suspect]
     Active Substance: METHYLPREDNISOLONE
     Indication: SNAKE BITE
     Dosage: UNK

REACTIONS (4)
  - Syncope [Recovered/Resolved]
  - Eyelid ptosis [Recovered/Resolved]
  - Oedema peripheral [Recovering/Resolving]
  - Bulbar palsy [Recovered/Resolved]
